FAERS Safety Report 4754402-4 (Version None)
Quarter: 2005Q3

REPORT INFORMATION
  Report Type: 
  Country: None (occurrence: None)
  Receive Date: 20050829
  Receipt Date: 20050708
  Transmission Date: 20060218
  Serious: Yes (Hospitalization)
  Sender: FDA-Public Use
  Company Number: US-BOEHRINGER INGELHEIM PHARMACEUTICALS, INC.-2005-BP-11502BP

PATIENT
  Sex: Male
  Weight: 85.3 kg

DRUGS (14)
  1. TIPRANAVIR / RITONAVIR CAPSULES [Suspect]
     Indication: HIV INFECTION
     Dosage: TPV/R 1000MG/ 400 MG DAILY
     Route: 048
     Dates: start: 20050420
  2. FUZEON [Concomitant]
     Indication: HIV INFECTION
     Route: 058
     Dates: start: 20050420
  3. TRUVADA [Concomitant]
     Indication: HIV INFECTION
     Dosage: 300/200 DAILY
     Route: 048
     Dates: start: 20050420
  4. DURAGESIC-100 [Concomitant]
     Dosage: 100 MCG/ HR APPLY EVERY 72 HOUR
  5. SEREVENT [Concomitant]
     Dosage: 50MCG QD TO BID
  6. BACTRIM DS [Concomitant]
     Dosage: ONE QD
  7. NORTRIPTYLINE HCL [Concomitant]
  8. MARINOL [Concomitant]
     Dosage: 10 MG BID
  9. NEXIUM [Concomitant]
  10. ACYCLOVIR [Concomitant]
  11. PHENERGAN [Concomitant]
  12. TRAZADONE [Concomitant]
     Dosage: 25 MG QHS
  13. PROZAC [Concomitant]
  14. DILAUDID [Concomitant]

REACTIONS (3)
  - ABDOMINAL PAIN [None]
  - DEHYDRATION [None]
  - NEUROPATHIC PAIN [None]
